FAERS Safety Report 22395212 (Version 1)
Quarter: 2023Q2

REPORT INFORMATION
  Report Type: Spontaneous
  Country: US (occurrence: US)
  Receive Date: 20230601
  Receipt Date: 20230601
  Transmission Date: 20230722
  Serious: Yes (Other)
  Sender: FDA-Public Use
  Company Number: US-GILEAD-2023-0629774

PATIENT
  Age: 71 Year
  Sex: Male

DRUGS (3)
  1. VOSEVI [Suspect]
     Active Substance: SOFOSBUVIR\VELPATASVIR\VOXILAPREVIR
     Indication: Chronic hepatitis C
     Dosage: UNK, 24 WEEKS
     Route: 065
  2. RIBAVIRIN [Suspect]
     Active Substance: RIBAVIRIN
     Indication: Chronic hepatitis C
     Route: 065
  3. RIBAVIRIN [Suspect]
     Active Substance: RIBAVIRIN
     Dosage: UNK, ALSO USED AS TREATMENT
     Route: 065

REACTIONS (2)
  - Hepatitis C [Recovered/Resolved]
  - Treatment failure [Recovered/Resolved]
